FAERS Safety Report 4373686-8 (Version None)
Quarter: 2004Q1

REPORT INFORMATION
  Report Type: 
  Country: None (occurrence: None)
  Receive Date: 20040305
  Receipt Date: 20040109
  Transmission Date: 20041129
  Serious: Yes (Other)
  Sender: FDA-Public Use
  Company Number: 2004UW00517

PATIENT
  Age: 56 Year
  Sex: Female
  Weight: 92.9874 kg

DRUGS (8)
  1. CRESTOR [Suspect]
     Indication: BLOOD CHOLESTEROL INCREASED
     Dosage: 40 MG PO
     Route: 048
  2. TOPROL-XL [Concomitant]
  3. NEXIUM [Concomitant]
  4. PREMARIN [Concomitant]
  5. CHLORDIAZEPOXIDE [Concomitant]
  6. CALCIUM [Concomitant]
  7. MULTI-VITAMINS [Concomitant]
  8. ASPIRIN [Concomitant]

REACTIONS (1)
  - DIARRHOEA [None]
